FAERS Safety Report 8250074-5 (Version None)
Quarter: 2012Q2

REPORT INFORMATION
  Report Type: 
  Country: None (occurrence: None)
  Receive Date: 20120402
  Receipt Date: 20120329
  Transmission Date: 20120825
  Serious: Yes (Death)
  Sender: FDA-Public Use
  Company Number: DE-B.I. PHARMACEUTICALS,INC./RIDGEFIELD-2012-DE-00898DE

PATIENT
  Age: 69 Year
  Sex: Male
  Weight: 67 kg

DRUGS (9)
  1. FERROL SANOL TROPFEN [Concomitant]
     Indication: ANAEMIA
     Dosage: 40 ANZ
  2. METOPROLOL TARTRATE [Concomitant]
     Indication: HYPERTENSION
     Dosage: 47.5 MG
     Dates: end: 20120311
  3. GABAPENTIN [Concomitant]
     Indication: NEURALGIA
     Dosage: 900 MG
     Dates: start: 20120301, end: 20120311
  4. MIRTAZAPINE [Concomitant]
     Indication: POST STROKE DEPRESSION
     Dosage: 30 MG
     Dates: start: 20120101, end: 20120311
  5. SIMVASTATIN [Concomitant]
     Indication: CORONARY ARTERY DISEASE
     Dates: end: 20120311
  6. MOVIPREP [Concomitant]
     Indication: CONSTIPATION
     Dosage: 60 ANZ
     Dates: start: 20120227
  7. PRADAXA [Suspect]
     Indication: ATRIAL FIBRILLATION
     Dosage: 300 MG
     Dates: start: 20120301, end: 20120312
  8. DIPYRONE TAB [Concomitant]
     Indication: PAIN
     Dosage: 60 ANZ
     Dates: start: 20120307
  9. SEROQUEL [Concomitant]
     Indication: DELUSION
     Dosage: 25 MG
     Dates: start: 20120217

REACTIONS (2)
  - SHOCK HAEMORRHAGIC [None]
  - GASTROINTESTINAL HAEMORRHAGE [None]
